FAERS Safety Report 10187859 (Version 2)
Quarter: 2014Q2

REPORT INFORMATION
  Report Type: Spontaneous
  Country: US (occurrence: None)
  Receive Date: 20140520
  Receipt Date: 20140528
  Transmission Date: 20141212
  Serious: Yes (Hospitalization, Other)
  Sender: FDA-Public Use
  Company Number: AUR-APL-2014-05630

PATIENT
  Age: 41 Year
  Sex: Male

DRUGS (2)
  1. PIPERACILLIN+TAZOBACTAM (PIPERACILLIN, TAZOBACTAM) [Suspect]
     Indication: LEPTOSPIROSIS
  2. DOXYCYCLINE (DOXYCYCLINE) [Suspect]
     Indication: LEPTOSPIROSIS

REACTIONS (10)
  - Jarisch-Herxheimer reaction [None]
  - Acute respiratory distress syndrome [None]
  - Tachypnoea [None]
  - Tachycardia [None]
  - Hypoxia [None]
  - Septic shock [None]
  - Metabolic acidosis [None]
  - Renal failure [None]
  - Continuous haemodiafiltration [None]
  - Lung infiltration [None]
